FAERS Safety Report 7959526-6 (Version None)
Quarter: 2011Q4

REPORT INFORMATION
  Report Type: 
  Country: None (occurrence: None)
  Receive Date: 20111206
  Receipt Date: 20111202
  Transmission Date: 20120403
  Serious: Yes (Death, Hospitalization)
  Sender: FDA-Public Use
  Company Number: GB-ROCHE-GNE322346

PATIENT
  Age: 96 Year
  Sex: Female

DRUGS (10)
  1. LUCENTIS [Suspect]
     Indication: PRODUCT USED FOR UNKNOWN INDICATION
     Route: 050
     Dates: start: 20081212
  2. CYCLIZINE [Concomitant]
  3. LEVOBUNOLOL [Concomitant]
  4. TOLTERODINE TARTRATE [Concomitant]
  5. ACETYLSALICYLIC ACID SRT [Concomitant]
  6. MORPHINE SULFATE [Concomitant]
  7. HALOPERIDOL [Concomitant]
  8. ACETAMINOPHEN [Concomitant]
  9. ATENOLOL [Concomitant]
  10. LATANOPROST [Concomitant]

REACTIONS (3)
  - RENAL FAILURE ACUTE [None]
  - DEATH [None]
  - LOWER RESPIRATORY TRACT INFECTION [None]
